FAERS Safety Report 5977407-4 (Version None)
Quarter: 2008Q4

REPORT INFORMATION
  Report Type: 
  Country: None (occurrence: None)
  Receive Date: 20081203
  Receipt Date: 20081124
  Transmission Date: 20090506
  Serious: Yes (Death, Life-Threatening, Other)
  Sender: FDA-Public Use
  Company Number: US-BAYER-200814583BCC

PATIENT
  Age: 67 Year
  Sex: Female

DRUGS (4)
  1. ASPIRIN [Suspect]
     Indication: ANTICOAGULANT THERAPY
     Dates: start: 20080901
  2. ANGIOMAX [Suspect]
  3. PLAVIX [Suspect]
  4. PREDNISONE TAB [Concomitant]

REACTIONS (4)
  - DISSEMINATED INTRAVASCULAR COAGULATION [None]
  - HAEMORRHAGE [None]
  - PUNCTURE SITE HAEMORRHAGE [None]
  - RETROPERITONEAL HAEMORRHAGE [None]
